FAERS Safety Report 8594130-0 (Version None)
Quarter: 2012Q3

REPORT INFORMATION
  Report Type: 
  Country: None (occurrence: None)
  Receive Date: 20120814
  Receipt Date: 20120725
  Transmission Date: 20120928
  Serious: Yes (Other)
  Sender: FDA-Public Use
  Company Number: JP-009507513-1208JPN000137

PATIENT

DRUGS (8)
  1. JANUVIA [Concomitant]
     Indication: DIABETES MELLITUS
     Route: 048
     Dates: start: 20120507
  2. INCIVEK [Suspect]
     Route: 048
     Dates: start: 20120625
  3. REBETOL [Suspect]
     Route: 048
     Dates: start: 20120514
  4. REBETOL [Suspect]
     Route: 048
     Dates: start: 20120528
  5. PEG-INTRON [Suspect]
     Dosage: 50MCG/KG/WEEK
     Route: 058
     Dates: start: 20120618
  6. REBETOL [Suspect]
     Indication: HEPATITIS C
     Route: 048
     Dates: start: 20120409, end: 20120513
  7. PEG-INTRON [Suspect]
     Indication: HEPATITIS C
     Dosage: 100MCG/KG/WEEK
     Route: 058
     Dates: start: 20120409, end: 20120611
  8. INCIVEK [Suspect]
     Indication: HEPATITIS C
     Route: 048
     Dates: start: 20120409, end: 20120624

REACTIONS (1)
  - RASH [None]
